FAERS Safety Report 4853670-8 (Version None)
Quarter: 2005Q4

REPORT INFORMATION
  Report Type: 
  Country: None (occurrence: None)
  Receive Date: 20051212
  Receipt Date: 20051124
  Transmission Date: 20060501
  Serious: Yes (Death)
  Sender: FDA-Public Use
  Company Number: MY200511002695

PATIENT
  Age: 85 Year
  Sex: Female

DRUGS (6)
  1. FORTEO [Suspect]
     Indication: OSTEOPOROSIS
     Dosage: 20 UG, DAILY (1/D), SUBCUTANEOUS
     Route: 058
     Dates: start: 20051025, end: 20051121
  2. SULODEXIDE (SULODEXIDE) [Concomitant]
  3. DOXIUM (CALCIUM DOBESILATE) [Concomitant]
  4. DIHYDROCODEINE BITARTRATE INJ [Concomitant]
  5. TRAMADOL HCL [Concomitant]
  6. ATORVASTATIN CALCIUM [Concomitant]

REACTIONS (1)
  - DEATH [None]
